FAERS Safety Report 10511416 (Version 2)
Quarter: 2014Q4

REPORT INFORMATION
  Report Type: Spontaneous
  Country: US (occurrence: US)
  Receive Date: 20141010
  Receipt Date: 20141113
  Transmission Date: 20150528
  Serious: Yes (Hospitalization, Other)
  Sender: FDA-Public Use
  Company Number: US-BAYER-2014-148163

PATIENT
  Age: 26 Year
  Sex: Female
  Weight: 58.96 kg

DRUGS (5)
  1. CIPRO [Concomitant]
     Active Substance: CIPROFLOXACIN HYDROCHLORIDE
  2. ZOFRAN [Concomitant]
     Active Substance: ONDANSETRON HYDROCHLORIDE
     Indication: NAUSEA
  3. MIRENA [Suspect]
     Active Substance: LEVONORGESTREL
     Indication: CONTRACEPTION
     Dosage: 20 MCG/24HR, CONT
     Route: 015
     Dates: start: 20061102, end: 20100112
  4. TORADOL [Concomitant]
     Active Substance: KETOROLAC TROMETHAMINE
  5. NORMAL SALINE [Concomitant]
     Active Substance: SODIUM CHLORIDE

REACTIONS (10)
  - Enterocolitis [None]
  - Vaginal haemorrhage [None]
  - Anxiety [None]
  - Depression [None]
  - Blighted ovum [None]
  - Haematuria [None]
  - Device issue [None]
  - Abortion spontaneous [None]
  - Uterine perforation [None]
  - Abdominal pain [None]

NARRATIVE: CASE EVENT DATE: 200904
